FAERS Safety Report 7518758-1 (Version None)
Quarter: 2011Q2

REPORT INFORMATION
  Report Type: 
  Country: None (occurrence: None)
  Receive Date: 20110602
  Receipt Date: 20110529
  Transmission Date: 20111010
  Serious: Yes (Death, Hospitalization)
  Sender: FDA-Public Use
  Company Number: PHHY2011MX46762

PATIENT
  Sex: Male

DRUGS (1)
  1. DIOVAN [Suspect]
     Indication: HYPERTENSION
     Dosage: 1 DF, 1 TABLET PER DAY
     Dates: start: 20101112, end: 20110418

REACTIONS (4)
  - MYOCARDIAL INFARCTION [None]
  - RENAL DISORDER [None]
  - COUGH [None]
  - LUNG INFECTION [None]
